FAERS Safety Report 4371373-3 (Version None)
Quarter: 2004Q2

REPORT INFORMATION
  Report Type: 
  Country: None (occurrence: None)
  Receive Date: 20040604
  Receipt Date: 20040521
  Transmission Date: 20050107
  Serious: Yes (Death)
  Sender: FDA-Public Use
  Company Number: 2004S1001494

PATIENT
  Age: 56 Year
  Sex: Male

DRUGS (10)
  1. CLOZAPINE [Suspect]
     Indication: DEMENTIA
     Dosage: 100MG BID, ORAL
     Route: 048
     Dates: end: 20040502
  2. NYSTATIN [Concomitant]
  3. DIGOXIN [Concomitant]
  4. WARFARIN SODIUM [Concomitant]
  5. AMLODIPINE [Concomitant]
  6. ASPIRIN [Concomitant]
  7. FOLIC ACID [Concomitant]
  8. TOPIRMATE [Concomitant]
  9. ALBUTEROL [Concomitant]
  10. VALPROATE SODIUM [Concomitant]

REACTIONS (1)
  - CARDIAC DISORDER [None]
